FAERS Safety Report 24765573 (Version 1)
Quarter: 2024Q4

REPORT INFORMATION
  Report Type: Spontaneous
  Country: US (occurrence: None)
  Receive Date: 20241221
  Receipt Date: 20241221
  Transmission Date: 20250114
  Serious: Yes (Hospitalization)
  Sender: Public
  Company Number: None

PATIENT
  Age: 62 Year
  Sex: Female
  Weight: 116.8 kg

DRUGS (4)
  1. FLUOROURACIL [Suspect]
     Active Substance: FLUOROURACIL
     Dates: end: 20241118
  2. XELODA [Suspect]
     Active Substance: CAPECITABINE
     Dates: end: 20240809
  3. LEUCOVORIN CALCIUM [Suspect]
     Active Substance: LEUCOVORIN CALCIUM
     Dates: end: 20241118
  4. ELOXATIN [Suspect]
     Active Substance: OXALIPLATIN
     Dates: end: 20241118

REACTIONS (6)
  - Dizziness [None]
  - Back pain [None]
  - Dyspnoea [None]
  - Troponin increased [None]
  - Right ventricular failure [None]
  - Pulmonary hypertension [None]

NARRATIVE: CASE EVENT DATE: 20241125
